FAERS Safety Report 7607128-3 (Version None)
Quarter: 2011Q3

REPORT INFORMATION
  Report Type: 
  Country: None (occurrence: None)
  Receive Date: 20110713
  Receipt Date: 20110628
  Transmission Date: 20111222
  Serious: No
  Sender: FDA-Public Use
  Company Number: US-B.I. PHARMACEUTICALS,INC./RIDGEFIELD-2011-BP-16495BP

PATIENT
  Sex: Male

DRUGS (1)
  1. PRADAXA [Suspect]
     Route: 048

REACTIONS (2)
  - FLATULENCE [None]
  - ABDOMINAL DISCOMFORT [None]
